FAERS Safety Report 23239351 (Version 1)
Quarter: 2023Q4

REPORT INFORMATION
  Report Type: Spontaneous
  Country: US (occurrence: US)
  Receive Date: 20231129
  Receipt Date: 20231129
  Transmission Date: 20240109
  Serious: No
  Sender: FDA-Public Use
  Company Number: US-drreddys-SPO/USA/23/0183486

PATIENT
  Age: 35 Year
  Sex: Female

DRUGS (3)
  1. ACCUTANE [Suspect]
     Active Substance: ISOTRETINOIN
     Indication: Product used for unknown indication
     Dosage: 08 JUNE 2023 09:33:00 AM, 10 JULY 2023 10:52:12 AM
  2. ACCUTANE [Suspect]
     Active Substance: ISOTRETINOIN
     Dosage: 09 AUGUST 2023 11:48:33 AM
  3. ACCUTANE [Suspect]
     Active Substance: ISOTRETINOIN
     Dosage: 07 SEPTEMBER 2023 03:42:15 PM, 09 OCTOBER 2023 03:09:39 PM

REACTIONS (1)
  - Therapy cessation [Unknown]
